FAERS Safety Report 17082365 (Version 1)
Quarter: 2019Q4

REPORT INFORMATION
  Report Type: Spontaneous
  Country: ES (occurrence: ES)
  Receive Date: 20191127
  Receipt Date: 20191127
  Transmission Date: 20200122
  Serious: Yes (Other)
  Sender: FDA-Public Use
  Company Number: ES-SA-2019SA323214

PATIENT
  Sex: Male

DRUGS (1)
  1. LANTUS [Suspect]
     Active Substance: INSULIN GLARGINE
     Indication: DIABETES MELLITUS
     Dosage: 2-5IU, EVERY 24 HR, ACCORDING TO GLYCEMIAS
     Route: 065

REACTIONS (8)
  - Hyperhidrosis [Recovered/Resolved]
  - Renal failure [Not Recovered/Not Resolved]
  - Loss of consciousness [Unknown]
  - Nervousness [Not Recovered/Not Resolved]
  - Blood glucose increased [Not Recovered/Not Resolved]
  - Product storage error [Unknown]
  - Hypoglycaemia [Recovered/Resolved]
  - Intentional product misuse [Unknown]
